FAERS Safety Report 7492225-6 (Version None)
Quarter: 2011Q2

REPORT INFORMATION
  Report Type: 
  Country: None (occurrence: None)
  Receive Date: 20110519
  Receipt Date: 20101129
  Transmission Date: 20111010
  Serious: No
  Sender: FDA-Public Use
  Company Number: US-NOVEN-ALL1-2010-06204

PATIENT
  Sex: Male
  Weight: 37.642 kg

DRUGS (5)
  1. DAYTRANA [Suspect]
     Dosage: 20 MG, 1X/DAY:QD
     Route: 062
     Dates: start: 20080101
  2. RISPERDAL [Concomitant]
     Dosage: 1 MG, 1X/DAY:QD
     Route: 048
     Dates: start: 20080101, end: 20100501
  3. DAYTRANA [Suspect]
     Dosage: 10 MG, 1X/DAY:QD
     Route: 062
     Dates: start: 20080101, end: 20080101
  4. DAYTRANA [Suspect]
     Dosage: 15 MG, 1X/DAY:QD
     Route: 062
     Dates: start: 20080101, end: 20080101
  5. RISPERDAL [Concomitant]
     Dosage: 0.5 MG, 1X/DAY:QD
     Route: 048
     Dates: start: 20100501

REACTIONS (9)
  - IRREGULAR SLEEP PHASE [None]
  - DISTURBANCE IN ATTENTION [None]
  - TIC [None]
  - DRUG EFFECT DECREASED [None]
  - OBSESSIVE THOUGHTS [None]
  - INSOMNIA [None]
  - CONDITION AGGRAVATED [None]
  - DECREASED APPETITE [None]
  - NEGATIVISM [None]
